FAERS Safety Report 22622840 (Version 1)
Quarter: 2023Q2

REPORT INFORMATION
  Report Type: Spontaneous
  Country: US (occurrence: US)
  Receive Date: 20230621
  Receipt Date: 20230621
  Transmission Date: 20230722
  Serious: Yes (Hospitalization, Other)
  Sender: FDA-Public Use
  Company Number: US-BRISTOL-MYERS SQUIBB COMPANY-2023-086867

PATIENT
  Age: 77 Year
  Sex: Male

DRUGS (1)
  1. REVLIMID [Suspect]
     Active Substance: LENALIDOMIDE
     Indication: Plasma cell myeloma
     Dosage: DAILY
     Route: 048
     Dates: start: 202103

REACTIONS (6)
  - Neutropenia [Unknown]
  - Thrombocytopenia [Unknown]
  - Visual impairment [Unknown]
  - Fatigue [Unknown]
  - Dizziness [Unknown]
  - Neuropathy peripheral [Unknown]
